FAERS Safety Report 20576342 (Version 1)
Quarter: 2022Q1

REPORT INFORMATION
  Report Type: Spontaneous
  Country: JP (occurrence: JP)
  Receive Date: 20220310
  Receipt Date: 20220310
  Transmission Date: 20220423
  Serious: Yes (Other)
  Sender: FDA-Public Use
  Company Number: JP-VIIV HEALTHCARE LIMITED-JP2022JPN042759

PATIENT
  Age: 6 Decade
  Sex: Male

DRUGS (1)
  1. TRIUMEQ [Suspect]
     Active Substance: ABACAVIR SULFATE\DOLUTEGRAVIR SODIUM\LAMIVUDINE
     Dosage: UNK

REACTIONS (3)
  - Immune reconstitution inflammatory syndrome [Unknown]
  - Progressive multifocal leukoencephalopathy [Unknown]
  - Cognitive disorder [Recovered/Resolved]
